FAERS Safety Report 7038870-3 (Version None)
Quarter: 2010Q4

REPORT INFORMATION
  Report Type: 
  Country: None (occurrence: None)
  Receive Date: 20101012
  Receipt Date: 20100325
  Transmission Date: 20110411
  Serious: Yes (Hospitalization, Other)
  Sender: FDA-Public Use
  Company Number: US-BAYER-201017141NA

PATIENT
  Age: 30 Year
  Sex: Female
  Weight: 68 kg

DRUGS (2)
  1. YASMIN [Suspect]
     Indication: PRODUCT USED FOR UNKNOWN INDICATION
     Dosage: YASMIN WAS REFILLED: 2005, 12-SEP-2005, OCT-2005, 24-DEC-2005 AND 06-JANYASMIN WAS REFILLED: 2005, 1
     Route: 048
     Dates: start: 20050801, end: 20091201
  2. YAZ [Suspect]
     Indication: CONTRACEPTION
     Dosage: -
     Route: 048
     Dates: start: 20050801, end: 20100101

REACTIONS (3)
  - ABDOMINAL PAIN UPPER [None]
  - CHOLELITHIASIS [None]
  - MENTAL DISORDER [None]
